FAERS Safety Report 9375334 (Version 1)
Quarter: 2013Q2

REPORT INFORMATION
  Report Type: Other
  Country: GB (occurrence: GB)
  Receive Date: 20130628
  Receipt Date: 20130628
  Transmission Date: 20140414
  Serious: Yes (Death, Life-Threatening, Hospitalization)
  Sender: FDA-Public Use
  Company Number: GB-WATSON-2013-11537

PATIENT
  Age: 88 Year
  Sex: Female

DRUGS (2)
  1. PREDNISOLONE (UNKNOWN) [Suspect]
     Indication: GRANULOMATOSIS WITH POLYANGIITIS
     Dosage: 50 MG, DAILY
     Route: 048
     Dates: end: 20050524
  2. ALENDRONIC ACID [Suspect]
     Indication: OSTEOPOROSIS PROPHYLAXIS
     Dosage: 70 MG, WEEKLY
     Route: 048
     Dates: end: 20050523

REACTIONS (4)
  - Oesophageal perforation [Fatal]
  - Pneumomediastinum [Fatal]
  - Inflammatory marker increased [Fatal]
  - Pneumonia aspiration [Fatal]
